FAERS Safety Report 8358816-5 (Version None)
Quarter: 2012Q2

REPORT INFORMATION
  Report Type: 
  Country: None (occurrence: None)
  Receive Date: 20120514
  Receipt Date: 20120502
  Transmission Date: 20120825
  Serious: Yes (Hospitalization, Disabling, Other)
  Sender: FDA-Public Use
  Company Number: US-MYLANLABS-2009AC000144

PATIENT
  Sex: Male
  Weight: 83 kg

DRUGS (12)
  1. ASPIRIN [Concomitant]
  2. DIGOXIN [Suspect]
     Route: 048
     Dates: start: 20040127, end: 20090330
  3. CLOPIDOGREL [Concomitant]
  4. METOPROLOL TARTRATE [Concomitant]
  5. ADVAIR DISKUS 100/50 [Concomitant]
  6. NIFEDIPINE [Concomitant]
  7. ZOCOR [Concomitant]
  8. AMLODIPINE BESYLATE [Concomitant]
  9. FELODIPINE [Concomitant]
  10. LOPRESSOR [Concomitant]
  11. SIMVASTATIN [Concomitant]
  12. PLAVIX [Concomitant]

REACTIONS (24)
  - ANGINA PECTORIS [None]
  - CATARACT [None]
  - COUGH [None]
  - VISUAL IMPAIRMENT [None]
  - CORONARY ARTERY DISEASE [None]
  - CARDIAC VENTRICULOGRAM LEFT [None]
  - CATHETERISATION CARDIAC [None]
  - ANGIOGRAM [None]
  - CATARACT OPERATION [None]
  - CHEST PAIN [None]
  - IN-STENT CORONARY ARTERY RESTENOSIS [None]
  - ANGLE CLOSURE GLAUCOMA [None]
  - CARDIAC STRESS TEST ABNORMAL [None]
  - PERCUTANEOUS CORONARY INTERVENTION [None]
  - ELECTROCARDIOGRAM ABNORMAL [None]
  - PALPITATIONS [None]
  - MACULAR DEGENERATION [None]
  - STENT PLACEMENT [None]
  - POLYURIA [None]
  - ANGIOPLASTY [None]
  - GLYCOSYLATED HAEMOGLOBIN INCREASED [None]
  - ANGINA UNSTABLE [None]
  - BLINDNESS UNILATERAL [None]
  - INTRAOCULAR LENS IMPLANT [None]
